FAERS Safety Report 14481655 (Version 1)
Quarter: 2018Q1

REPORT INFORMATION
  Report Type: Report from Study
  Country: CA (occurrence: CA)
  Receive Date: 20180202
  Receipt Date: 20180202
  Transmission Date: 20180509
  Serious: Yes (Other)
  Sender: FDA-Public Use
  Company Number: CA-BAYER-2017-231761

PATIENT
  Age: 19 Year
  Sex: Female

DRUGS (2)
  1. MIRENA [Suspect]
     Active Substance: LEVONORGESTREL
     Indication: CONTRACEPTION
     Dosage: 20 MCG/24HR, CONT
     Route: 015
     Dates: start: 20171004, end: 20171110
  2. MIRENA [Suspect]
     Active Substance: LEVONORGESTREL

REACTIONS (12)
  - Pelvic infection [None]
  - Medical device monitoring error [None]
  - Device expulsion [None]
  - Vaginal discharge [None]
  - Pyrexia [None]
  - Pelvic pain [None]
  - Endometritis [None]
  - Abdominal pain lower [None]
  - Contraindicated device used [None]
  - Genital haemorrhage [None]
  - Abscess bacterial [None]
  - Adnexa uteri cyst [None]

NARRATIVE: CASE EVENT DATE: 201710
